FAERS Safety Report 11758972 (Version 1)
Quarter: 2015Q4

REPORT INFORMATION
  Report Type: Spontaneous
  Country: US (occurrence: US)
  Receive Date: 20151120
  Receipt Date: 20151120
  Transmission Date: 20160304
  Serious: No
  Sender: FDA-Public Use
  Company Number: US-ELI_LILLY_AND_COMPANY-US201209006943

PATIENT
  Sex: Female

DRUGS (4)
  1. CALCIUM [Concomitant]
     Active Substance: CALCIUM
  2. VITAMIN D [Concomitant]
     Active Substance: CHOLECALCIFEROL
  3. MULTIVITAMIN [Concomitant]
     Active Substance: VITAMINS
  4. FORTEO [Suspect]
     Active Substance: TERIPARATIDE
     Indication: OSTEOPOROSIS
     Dosage: 20 UG, QD
     Route: 065

REACTIONS (17)
  - Dyspnoea [Unknown]
  - Eye disorder [Unknown]
  - Depressed level of consciousness [Unknown]
  - Hypoacusis [Unknown]
  - Oral discomfort [Unknown]
  - Sleep disorder [Unknown]
  - Burning sensation [Unknown]
  - Hiccups [Unknown]
  - Depression [Unknown]
  - Eye burns [Unknown]
  - Eye discharge [Unknown]
  - Constipation [Unknown]
  - Oral pain [Unknown]
  - Feeling abnormal [Unknown]
  - Asthenia [Unknown]
  - Visual impairment [Unknown]
  - Anxiety [Unknown]
